FAERS Safety Report 22614786 (Version 1)
Quarter: 2023Q2

REPORT INFORMATION
  Report Type: Spontaneous
  Country: US (occurrence: US)
  Receive Date: 20230619
  Receipt Date: 20230619
  Transmission Date: 20230721
  Serious: Yes (Death, Life-Threatening, Hospitalization, Other)
  Sender: FDA-Public Use
  Company Number: None

PATIENT
  Age: 68 Year
  Sex: Female

DRUGS (2)
  1. AZATHIOPRINE [Suspect]
     Active Substance: AZATHIOPRINE
     Indication: Autoimmune hepatitis
     Dosage: UNK
     Route: 065
     Dates: start: 2015
  2. PREDNISONE [Suspect]
     Active Substance: PREDNISONE
     Indication: Product used for unknown indication
     Dosage: 60 MILLIGRAM, QD, PROLONGED TAPER
     Route: 065

REACTIONS (6)
  - Acute respiratory failure [Fatal]
  - Aspergillus infection [Fatal]
  - Pulmonary alveolar haemorrhage [Fatal]
  - Brain abscess [Fatal]
  - Endophthalmitis [Fatal]
  - Nocardiosis [Fatal]
